FAERS Safety Report 13997093 (Version 1)
Quarter: 2017Q3

REPORT INFORMATION
  Report Type: Spontaneous
  Country: CH (occurrence: CH)
  Receive Date: 20170921
  Receipt Date: 20170921
  Transmission Date: 20171128
  Serious: Yes (Hospitalization)
  Sender: FDA-Public Use
  Company Number: CH-BAYER-2017-175592

PATIENT
  Age: 81 Year

DRUGS (6)
  1. LASILACTON [Concomitant]
     Active Substance: FUROSEMIDE\SPIRONOLACTONE
  2. ESOMEPRAZOLE [Concomitant]
     Active Substance: ESOMEPRAZOLE
  3. XOFIGO [Suspect]
     Active Substance: RADIUM RA-223 DICHLORIDE
     Dosage: UNK
     Dates: start: 201707, end: 201707
  4. XOFIGO [Suspect]
     Active Substance: RADIUM RA-223 DICHLORIDE
     Dosage: UNK
  5. LEXOTANIL [Concomitant]
     Active Substance: BROMAZEPAM
  6. BLOPRESS [Concomitant]
     Active Substance: CANDESARTAN CILEXETIL
     Dosage: 8 MG, UNK

REACTIONS (4)
  - Dizziness [None]
  - Vestibular disorder [None]
  - Vomiting [None]
  - Hypertension [None]
